FAERS Safety Report 6043094-2 (Version None)
Quarter: 2009Q1

REPORT INFORMATION
  Report Type: 
  Country: None (occurrence: None)
  Receive Date: 20090119
  Receipt Date: 20090105
  Transmission Date: 20090719
  Serious: Yes (Hospitalization, Disabling)
  Sender: FDA-Public Use
  Company Number: GB-ROCHE-606224

PATIENT
  Age: 26 Year
  Sex: Female
  Weight: 65 kg

DRUGS (14)
  1. TAMIFLU [Suspect]
     Route: 048
     Dates: start: 20081204, end: 20081212
  2. ACYCLOVIR SODIUM [Concomitant]
  3. ALLOPURINOL [Concomitant]
  4. CITALOPRAM HYDROBROMIDE [Concomitant]
  5. DAUNORUBICIN HYDROCHLORIDE [Concomitant]
  6. METHOTREXATE [Concomitant]
  7. NORETHISTERON [Concomitant]
  8. OMEPRAZOLE MAGNESIUM [Concomitant]
  9. ONCASPAR [Concomitant]
     Dosage: DRUG NAME REPORTED AS ONCASPAR PRODUCT.
  10. PREDNISOLONE [Concomitant]
  11. SEPTRIN [Concomitant]
  12. TAZOCIN [Concomitant]
  13. TEICOPLANINE [Concomitant]
  14. VINCRISTINE [Concomitant]

REACTIONS (1)
  - GRAND MAL CONVULSION [None]
